FAERS Safety Report 9018284 (Version 2)
Quarter: 2013Q1

REPORT INFORMATION
  Report Type: Report from Study
  Country: US (occurrence: US)
  Receive Date: 20130117
  Receipt Date: 20130125
  Transmission Date: 20140127
  Serious: Yes (Hospitalization)
  Sender: FDA-Public Use
  Company Number: US-ACTELION-A-US2013-77929

PATIENT
  Age: 70 Year
  Sex: Female

DRUGS (3)
  1. VENTAVIS [Suspect]
     Indication: PULMONARY ARTERIAL HYPERTENSION
     Dosage: UNK
     Route: 055
  2. COUMADIN [Concomitant]
  3. ASPIRIN [Concomitant]

REACTIONS (2)
  - Respiratory tract infection [Unknown]
  - Urinary tract infection [Unknown]
